FAERS Safety Report 20737148 (Version 6)
Quarter: 2023Q1

REPORT INFORMATION
  Report Type: Spontaneous
  Country: US (occurrence: US)
  Receive Date: 20220421
  Receipt Date: 20230208
  Transmission Date: 20230417
  Serious: No
  Sender: FDA-Public Use
  Company Number: US-PFIZER INC-202200413464

PATIENT
  Age: 61 Year
  Sex: Female

DRUGS (3)
  1. IBRANCE [Suspect]
     Active Substance: PALBOCICLIB
     Dosage: UNK
     Dates: start: 20220307
  2. IBRANCE [Suspect]
     Active Substance: PALBOCICLIB
     Dosage: 125 MG
  3. IBRANCE [Suspect]
     Active Substance: PALBOCICLIB
     Dosage: 100 MG

REACTIONS (10)
  - Fatigue [Unknown]
  - Constipation [Recovering/Resolving]
  - Dry skin [Unknown]
  - Rash pruritic [Unknown]
  - Rash [Recovering/Resolving]
  - Full blood count decreased [Unknown]
  - Nausea [Unknown]
  - Ageusia [Unknown]
  - Alopecia [Unknown]
  - Asthma [Unknown]

NARRATIVE: CASE EVENT DATE: 20220301
